FAERS Safety Report 7327901-9 (Version None)
Quarter: 2011Q1

REPORT INFORMATION
  Report Type: 
  Country: None (occurrence: None)
  Receive Date: 20110224
  Receipt Date: 20110224
  Transmission Date: 20110831
  Serious: Yes (Other)
  Sender: FDA-Public Use
  Company Number: None

PATIENT
  Sex: Female
  Weight: 82.2825 kg

DRUGS (3)
  1. OTC TYLENOL LIQUID CHEST CONGESTION [Concomitant]
  2. ALENDRONATE SODIUM [Suspect]
     Indication: OSTEOPENIA
     Dosage: 70 MG 1 WEEKLY PO
     Route: 048
     Dates: start: 20020101
  3. OTC BENADRYL [Concomitant]

REACTIONS (1)
  - ANGIOEDEMA [None]
